FAERS Safety Report 14539238 (Version 1)
Quarter: 2018Q1

REPORT INFORMATION
  Report Type: Spontaneous
  Country: US (occurrence: US)
  Receive Date: 20180215
  Receipt Date: 20180215
  Transmission Date: 20180509
  Serious: Yes (Other)
  Sender: FDA-Public Use
  Company Number: None

PATIENT
  Sex: Female
  Weight: 75.6 kg

DRUGS (5)
  1. SYNTHROID [Concomitant]
     Active Substance: LEVOTHYROXINE SODIUM
  2. ALBUTEROL SULFATE. [Suspect]
     Active Substance: ALBUTEROL SULFATE
     Indication: SINUSITIS
     Dosage: ?          QUANTITY:200 INHALATION(S);?
     Route: 055
     Dates: start: 20180214, end: 20180215
  3. ZYRTEC [Concomitant]
     Active Substance: CETIRIZINE HYDROCHLORIDE
  4. SINGULAIR [Concomitant]
     Active Substance: MONTELUKAST SODIUM
  5. FISH OIL [Concomitant]
     Active Substance: FISH OIL

REACTIONS (3)
  - Cough [None]
  - Dyspnoea [None]
  - Dysphonia [None]

NARRATIVE: CASE EVENT DATE: 20180215
